FAERS Safety Report 17494993 (Version 1)
Quarter: 2020Q1

REPORT INFORMATION
  Report Type: Spontaneous
  Country: US (occurrence: US)
  Receive Date: 20200303
  Receipt Date: 20200303
  Transmission Date: 20200409
  Serious: No
  Sender: FDA-Public Use
  Company Number: US-AMNEAL PHARMACEUTICALS-2019-AMRX-02748

PATIENT
  Sex: Female

DRUGS (1)
  1. RYTARY [Suspect]
     Active Substance: CARBIDOPA\LEVODOPA
     Indication: PARKINSON^S DISEASE
     Dosage: UNK, TID
     Route: 065
     Dates: start: 201902

REACTIONS (7)
  - Musculoskeletal stiffness [Unknown]
  - Therapeutic response shortened [Unknown]
  - Tremor [Unknown]
  - Coordination abnormal [Not Recovered/Not Resolved]
  - Headache [Recovered/Resolved]
  - Feeling abnormal [Unknown]
  - Labelled drug-food interaction medication error [Unknown]

NARRATIVE: CASE EVENT DATE: 2019
